FAERS Safety Report 16544551 (Version 2)
Quarter: 2019Q3

REPORT INFORMATION
  Report Type: Spontaneous
  Country: SA (occurrence: SA)
  Receive Date: 20190709
  Receipt Date: 20190714
  Transmission Date: 20191004
  Serious: Yes (Death)
  Sender: FDA-Public Use
  Company Number: PHHY2019SA157767

PATIENT
  Age: 74 Year
  Sex: Female

DRUGS (2)
  1. ANTICOAGULANTS [Concomitant]
     Active Substance: UNSPECIFIED INGREDIENT
     Indication: PRODUCT USED FOR UNKNOWN INDICATION
     Dosage: UNK
     Route: 065
  2. REVOLADE [Suspect]
     Active Substance: ELTROMBOPAG
     Indication: DISSEMINATED INTRAVASCULAR COAGULATION
     Dosage: 50 MG, QD
     Route: 065

REACTIONS (4)
  - Product use in unapproved indication [Unknown]
  - Disseminated intravascular coagulation [Fatal]
  - Haemorrhage [Fatal]
  - Drug ineffective [Unknown]
